FAERS Safety Report 18028379 (Version 1)
Quarter: 2020Q3

REPORT INFORMATION
  Report Type: Spontaneous
  Country: US (occurrence: US)
  Receive Date: 20200716
  Receipt Date: 20200716
  Transmission Date: 20201103
  Serious: No
  Sender: FDA-Public Use
  Company Number: US-AMGEN-USA-20200208994

PATIENT
  Age: 49 Year
  Sex: Male

DRUGS (4)
  1. OTEZLA [Suspect]
     Active Substance: APREMILAST
     Indication: PSORIASIS
     Dosage: 30 MILLIGRAM, QOD
     Route: 048
     Dates: start: 20180820
  2. OTEZLA [Suspect]
     Active Substance: APREMILAST
     Dosage: 30 MILLIGRAM, BID (EVERY 12 HR)
     Route: 048
     Dates: start: 20200110
  3. HYDROXYZINE [Concomitant]
     Active Substance: HYDROXYZINE HYDROCHLORIDE
     Indication: PRODUCT USED FOR UNKNOWN INDICATION
     Dosage: UNK
     Route: 065
     Dates: start: 20200204, end: 20200218
  4. FLOMAX [Concomitant]
     Active Substance: TAMSULOSIN HYDROCHLORIDE
     Indication: RENAL FAILURE
     Dosage: .4 MILLIGRAM, QD
     Route: 048
     Dates: start: 20140415, end: 20140512

REACTIONS (2)
  - Hypophagia [Not Recovered/Not Resolved]
  - Tension headache [Not Recovered/Not Resolved]
